FAERS Safety Report 21304181 (Version 2)
Quarter: 2022Q4

REPORT INFORMATION
  Report Type: Spontaneous
  Country: US (occurrence: US)
  Receive Date: 20220907
  Receipt Date: 20221031
  Transmission Date: 20230113
  Serious: Yes (Hospitalization, Other)
  Sender: FDA-Public Use
  Company Number: US-MYLANLABS-2022M1091599

PATIENT
  Sex: Female
  Weight: 53.52 kg

DRUGS (3)
  1. TETRABENAZINE [Suspect]
     Active Substance: TETRABENAZINE
     Indication: Tourette^s disorder
     Dosage: UNK, QD 1/2 TABLET ONCE DAILY FOR 1 WEEK
     Route: 065
  2. TETRABENAZINE [Suspect]
     Active Substance: TETRABENAZINE
     Dosage: UNK, BID 1/2 TABLET TWICE DAILY
     Route: 065
     Dates: end: 202208
  3. TETRABENAZINE [Suspect]
     Active Substance: TETRABENAZINE
     Dosage: 12.5 MILLIGRAM QD (TAKE ? HALF TABLET BY MOUTH IN THE MORNING, ? TABLET AT NOON,1 TABLET AT NIGHT)
     Route: 048
     Dates: start: 20220812, end: 20220827

REACTIONS (4)
  - Tic [Recovering/Resolving]
  - Depression [Recovering/Resolving]
  - Suicidal ideation [Recovering/Resolving]
  - Product use in unapproved indication [Unknown]
